FAERS Safety Report 6237401-5 (Version None)
Quarter: 2009Q2

REPORT INFORMATION
  Report Type: 
  Country: None (occurrence: None)
  Receive Date: 20090619
  Receipt Date: 20090615
  Transmission Date: 20091009
  Serious: Yes (Hospitalization, Other)
  Sender: FDA-Public Use
  Company Number: US-ROXANE LABORATORIES, INC.-2009-RO-00583RO

PATIENT
  Age: 37 Year
  Sex: Female

DRUGS (2)
  1. MERCAPTOPURINE [Suspect]
     Indication: ACCIDENTAL EXPOSURE
     Dosage: 300MG
  2. VITAMIN K [Suspect]
     Dosage: 5MG

REACTIONS (20)
  - ACCIDENTAL OVERDOSE [None]
  - ALOPECIA [None]
  - CHEST PAIN [None]
  - DRUG DISPENSING ERROR [None]
  - DRUG TOXICITY [None]
  - EYELID PTOSIS [None]
  - FATIGUE [None]
  - HAEMATOCRIT DECREASED [None]
  - HAEMOGLOBIN DECREASED [None]
  - HEADACHE [None]
  - HEPATIC ENZYME INCREASED [None]
  - HYPERTENSION [None]
  - NIGHT SWEATS [None]
  - PAIN [None]
  - PLATELET COUNT DECREASED [None]
  - PROTHROMBIN TIME PROLONGED [None]
  - RASH ERYTHEMATOUS [None]
  - SKIN DISCOLOURATION [None]
  - TACHYCARDIA [None]
  - WHITE BLOOD CELL COUNT DECREASED [None]
